FAERS Safety Report 10736428 (Version 2)
Quarter: 2015Q1

REPORT INFORMATION
  Report Type: Spontaneous
  Country: US (occurrence: US)
  Receive Date: 20150126
  Receipt Date: 20150322
  Transmission Date: 20150721
  Serious: No
  Sender: FDA-Public Use
  Company Number: US-ASTRAZENECA-2015SE04589

PATIENT
  Sex: Female

DRUGS (2)
  1. 25 DIFFERENT TYPES OF MEDICATIONS [Concomitant]
  2. SYMBICORT [Suspect]
     Active Substance: BUDESONIDE\FORMOTEROL FUMARATE DIHYDRATE
     Indication: ASTHMA
     Dosage: 80/4.5 MCG,2 PUFFS BID
     Route: 055

REACTIONS (6)
  - Drug dose omission [Unknown]
  - Head discomfort [Unknown]
  - Dizziness [Unknown]
  - Asthma [Unknown]
  - Memory impairment [Unknown]
  - Intentional product misuse [Unknown]
